FAERS Safety Report 5326230-2 (Version None)
Quarter: 2007Q2

REPORT INFORMATION
  Report Type: 
  Country: None (occurrence: None)
  Receive Date: 20070509
  Receipt Date: 20070424
  Transmission Date: 20071010
  Serious: Yes (Other)
  Sender: FDA-Public Use
  Company Number: B0466301A

PATIENT
  Age: 69 Year
  Sex: 0

DRUGS (1)
  1. AMOXICILLIN TRIHYDRATE [Suspect]

REACTIONS (3)
  - ACUTE GENERALISED EXANTHEMATOUS PUSTULOSIS [None]
  - SKIN TEST POSITIVE [None]
  - TYPE IV HYPERSENSITIVITY REACTION [None]
